FAERS Safety Report 22172103 (Version 2)
Quarter: 2023Q2

REPORT INFORMATION
  Report Type: Spontaneous
  Country: CA (occurrence: CA)
  Receive Date: 20230404
  Receipt Date: 20230406
  Transmission Date: 20230722
  Serious: Yes (Other)
  Sender: FDA-Public Use
  Company Number: CA-BEH-2023157223

PATIENT
  Age: 46 Year
  Sex: Female
  Weight: 98 kg

DRUGS (6)
  1. PRIVIGEN [Suspect]
     Active Substance: HUMAN IMMUNOGLOBULIN G
     Indication: Transfusion
     Dosage: 100 MILLILITER, TOT
     Route: 042
     Dates: start: 20220419, end: 20220419
  2. PRIVIGEN [Suspect]
     Active Substance: HUMAN IMMUNOGLOBULIN G
     Indication: Immune thrombocytopenia
     Dosage: 200 MILLILITER, TOT
     Route: 042
     Dates: start: 20220419, end: 20220419
  3. PRIVIGEN [Suspect]
     Active Substance: HUMAN IMMUNOGLOBULIN G
     Dosage: 100 MILLILITER, TOT
     Route: 042
     Dates: start: 20220419, end: 20220419
  4. CYKLOKAPRON [Concomitant]
     Active Substance: TRANEXAMIC ACID
     Dosage: 500 MILLIGRAM, Q4H
     Route: 048
     Dates: start: 20220328, end: 20220419
  5. LUPRON [Concomitant]
     Active Substance: LEUPROLIDE ACETATE
     Dosage: 3.75 MILLIGRAM, QMT
     Route: 030
     Dates: start: 20220328, end: 20220419
  6. FERROUS SULFATE ANHYDROUS [Concomitant]
     Active Substance: FERROUS SULFATE ANHYDROUS
     Dosage: 300 MILLIGRAM, QD
     Dates: start: 20220402, end: 20220419

REACTIONS (6)
  - Superficial vein thrombosis [Recovered/Resolved]
  - Chills [Recovered/Resolved]
  - Systolic hypertension [Recovered/Resolved]
  - Tremor [Recovered/Resolved]
  - Myalgia [Recovered/Resolved]
  - Drug intolerance [Recovered/Resolved]

NARRATIVE: CASE EVENT DATE: 20220401
